FAERS Safety Report 18779798 (Version 1)
Quarter: 2021Q1

REPORT INFORMATION
  Report Type: Spontaneous
  Country: IN (occurrence: IN)
  Receive Date: 20210125
  Receipt Date: 20210125
  Transmission Date: 20210419
  Serious: Yes (Other)
  Sender: FDA-Public Use
  Company Number: IN-CIPLA LTD.-2021IN00428

PATIENT

DRUGS (1)
  1. FINASTERIDE. [Suspect]
     Active Substance: FINASTERIDE
     Indication: ANDROGENETIC ALOPECIA
     Dosage: UNK
     Route: 065

REACTIONS (4)
  - Cerebral venous sinus thrombosis [Recovering/Resolving]
  - Oestradiol increased [Recovering/Resolving]
  - Papilloedema [Recovering/Resolving]
  - Oestrone increased [Recovering/Resolving]
